FAERS Safety Report 24601257 (Version 1)
Quarter: 2024Q4

REPORT INFORMATION
  Report Type: Spontaneous
  Country: US (occurrence: US)
  Receive Date: 20241111
  Receipt Date: 20241111
  Transmission Date: 20250114
  Serious: No
  Sender: JOHNSON AND JOHNSON
  Company Number: US-JNJFOC-20241109573

PATIENT
  Age: 44 Year
  Sex: Male
  Weight: 130.2 kg

DRUGS (17)
  1. OPSUMIT [Suspect]
     Active Substance: MACITENTAN
     Indication: Product used for unknown indication
     Route: 065
  2. AMBRISENTAN [Suspect]
     Active Substance: AMBRISENTAN
     Indication: Product used for unknown indication
     Route: 065
  3. TREPROSTINIL SODIUM [Suspect]
     Active Substance: TREPROSTINIL SODIUM
     Indication: Pulmonary arterial hypertension
     Dosage: SELF-FILL CASSETTE WITH 3 ML; RATE OF 56 MCL PER HOUR
     Route: 058
     Dates: start: 20231115
  4. HYDROCORTISONE [Concomitant]
     Active Substance: HYDROCORTISONE
  5. POTASSIUM CHLORIDE [Concomitant]
     Active Substance: POTASSIUM CHLORIDE
  6. TORSEMIDE [Concomitant]
     Active Substance: TORSEMIDE
  7. ALBUTEROL [Concomitant]
     Active Substance: ALBUTEROL
  8. SILDENAFIL CITRATE [Concomitant]
     Active Substance: SILDENAFIL CITRATE
  9. ASPIRIN [Concomitant]
     Active Substance: ASPIRIN
  10. FLUTICASONE PROPIONATE [Concomitant]
     Active Substance: FLUTICASONE PROPIONATE
  11. CENTRUM ADULTS [Concomitant]
  12. SOTATERCEPT [Concomitant]
     Active Substance: SOTATERCEPT
  13. CALCIUM POLYCARBOPHIL [Concomitant]
     Active Substance: CALCIUM POLYCARBOPHIL
  14. GUSELKUMAB [Concomitant]
     Active Substance: GUSELKUMAB
  15. BENADRYL [Concomitant]
     Active Substance: DIPHENHYDRAMINE HYDROCHLORIDE
  16. OXYGEN [Concomitant]
     Active Substance: OXYGEN
  17. HYDROXYZINE HYDROCHLORIDE [Concomitant]
     Active Substance: HYDROXYZINE HYDROCHLORIDE

REACTIONS (1)
  - Chest pain [Unknown]
